FAERS Safety Report 13988016 (Version 1)
Quarter: 2017Q3

REPORT INFORMATION
  Report Type: Report from Study
  Country: US (occurrence: US)
  Receive Date: 20170919
  Receipt Date: 20170919
  Transmission Date: 20171128
  Serious: Yes (Hospitalization, Other)
  Sender: FDA-Public Use
  Company Number: US-BAYER-2017-176165

PATIENT
  Age: 91 Year
  Sex: Male

DRUGS (2)
  1. NEXAVAR [Suspect]
     Active Substance: SORAFENIB
     Indication: HEPATOCELLULAR CARCINOMA
     Dosage: 200 MG, BID
     Route: 048
     Dates: start: 20170910
  2. NEXAVAR [Suspect]
     Active Substance: SORAFENIB
     Indication: HEPATOCELLULAR CARCINOMA
     Dosage: 200 MG, BID
     Route: 048
     Dates: start: 20170517, end: 20170826

REACTIONS (7)
  - Blood bilirubin increased [None]
  - Bile duct obstruction [None]
  - Jaundice [None]
  - Abdominal pain [Recovered/Resolved]
  - Off label use [None]
  - Decreased appetite [Recovering/Resolving]
  - Diverticulitis [None]
